FAERS Safety Report 25681990 (Version 1)
Quarter: 2025Q3

REPORT INFORMATION
  Report Type: Spontaneous
  Country: EU (occurrence: EU)
  Receive Date: 20250814
  Receipt Date: 20250814
  Transmission Date: 20251020
  Serious: Yes (Hospitalization, Other)
  Sender: MERCK SHARP & DOHME LLC
  Company Number: None

PATIENT
  Age: 70 Year
  Sex: Female
  Weight: 62 kg

DRUGS (4)
  1. KEYTRUDA [Suspect]
     Active Substance: PEMBROLIZUMAB
     Indication: Breast cancer
     Route: 042
     Dates: start: 20250131, end: 20250423
  2. ATORVASTATIN [Concomitant]
     Active Substance: ATORVASTATIN
  3. LERCANIDIPINE [Concomitant]
     Active Substance: LERCANIDIPINE
  4. ATENOLOL [Concomitant]
     Active Substance: ATENOLOL

REACTIONS (2)
  - Immune-mediated nephritis [Recovering/Resolving]
  - Hepatic enzyme increased [Recovered/Resolved]

NARRATIVE: CASE EVENT DATE: 20250626
